FAERS Safety Report 9839895 (Version 1)
Quarter: 2014Q1

REPORT INFORMATION
  Report Type: Spontaneous
  Country: BR (occurrence: BR)
  Receive Date: 20140124
  Receipt Date: 20140124
  Transmission Date: 20141002
  Serious: Yes (Other)
  Sender: FDA-Public Use
  Company Number: BR-AMGEN-BRASP2014004678

PATIENT
  Age: 48 Year
  Sex: Female
  Weight: 77.96 kg

DRUGS (3)
  1. ENBREL [Suspect]
     Indication: RHEUMATOID ARTHRITIS
     Dosage: 50 MG, ONCE WEEKLY
     Route: 058
     Dates: start: 2011, end: 20140108
  2. RIVOTRIL [Concomitant]
     Indication: DEPRESSION
     Dosage: UNK
  3. SERTRALINE [Concomitant]
     Indication: DEPRESSION
     Dosage: UNK

REACTIONS (11)
  - Cerebrovascular accident [Unknown]
  - Major depression [Unknown]
  - Vascular compression [Unknown]
  - Immunosuppression [Unknown]
  - Laceration [Unknown]
  - Erythema [Unknown]
  - Pyrexia [Unknown]
  - Diarrhoea [Unknown]
  - Blister infected [Unknown]
  - Bacterial infection [Unknown]
  - Infection [Unknown]
